FAERS Safety Report 18216180 (Version 1)
Quarter: 2020Q3

REPORT INFORMATION
  Report Type: Spontaneous
  Country: IT (occurrence: IT)
  Receive Date: 20200901
  Receipt Date: 20200901
  Transmission Date: 20201103
  Serious: Yes (Hospitalization)
  Sender: FDA-Public Use
  Company Number: IT-TEVA-2020-IT-1821343

PATIENT
  Age: 74 Year
  Sex: Male

DRUGS (6)
  1. RUXOLITINIB [Interacting]
     Active Substance: RUXOLITINIB
     Indication: COVID-19
     Dosage: 2 TABLETS/DAY FOR 2 DAYS, AND 4 TABLETS FOR 3 DAYS
     Route: 065
  2. ENOXAPARIN [Suspect]
     Active Substance: ENOXAPARIN
     Indication: COVID-19
     Route: 065
  3. DEXAMETHASONE. [Suspect]
     Active Substance: DEXAMETHASONE
     Indication: COVID-19
     Route: 065
  4. HYDROXYCHLOROQUINE [Suspect]
     Active Substance: HYDROXYCHLOROQUINE
     Indication: COVID-19
     Route: 065
  5. TOCILIZUMAB. [Suspect]
     Active Substance: TOCILIZUMAB
     Indication: COVID-19
     Dosage: 2 INJECTIONS PER 2 CYCLES A WEEK
     Route: 058
  6. LOPINAVIR/RITONAVIR [Interacting]
     Active Substance: LOPINAVIR\RITONAVIR
     Indication: COVID-19
     Dosage: 200/50MG TWO TABLETS
     Route: 065

REACTIONS (7)
  - Platelet count decreased [Unknown]
  - Soft tissue infection [Unknown]
  - Off label use [Unknown]
  - Drug interaction [Unknown]
  - Drug level increased [Unknown]
  - Purpura [Unknown]
  - Haematocrit decreased [Unknown]
